FAERS Safety Report 23619764 (Version 2)
Quarter: 2024Q3

REPORT INFORMATION
  Report Type: Spontaneous
  Country: US (occurrence: US)
  Receive Date: 20240312
  Receipt Date: 20240826
  Transmission Date: 20241017
  Serious: Yes (Disabling, Other)
  Sender: AMGEN
  Company Number: US-HORIZON THERAPEUTICS-HZN-2024-002826

PATIENT
  Age: 49 Year
  Sex: Female

DRUGS (17)
  1. TEPEZZA [Suspect]
     Active Substance: TEPROTUMUMAB-TRBW
     Indication: Endocrine ophthalmopathy
     Dosage: UNK (FIRST INFUSION)
     Route: 042
     Dates: start: 20220912
  2. TEPEZZA [Suspect]
     Active Substance: TEPROTUMUMAB-TRBW
     Indication: Graves^ disease
     Dosage: UNK (SECOND INFUSION)
     Route: 042
     Dates: start: 20221003
  3. TEPEZZA [Suspect]
     Active Substance: TEPROTUMUMAB-TRBW
     Dosage: UNK (THIRD INFUSION)
     Route: 042
     Dates: start: 20221024
  4. TEPEZZA [Suspect]
     Active Substance: TEPROTUMUMAB-TRBW
     Dosage: UNK (FOURTH INFUSION)
     Route: 042
     Dates: start: 20221114
  5. TEPEZZA [Suspect]
     Active Substance: TEPROTUMUMAB-TRBW
     Dosage: UNK (FIFTH INFUSION)
     Route: 042
     Dates: start: 20221205
  6. TEPEZZA [Suspect]
     Active Substance: TEPROTUMUMAB-TRBW
     Dosage: UNK (SIXTH INFUSION)
     Route: 042
     Dates: start: 20221230, end: 20221230
  7. TENORMIN [Concomitant]
     Active Substance: ATENOLOL
     Dosage: 50 MILLIGRAM, BID
     Route: 048
  8. AMPYRA [Concomitant]
     Active Substance: DALFAMPRIDINE
     Dosage: 10 MILLIGRAM, Q12H
     Route: 048
  9. ADDERALL [Concomitant]
     Active Substance: AMPHETAMINE ASPARTATE\AMPHETAMINE SULFATE\DEXTROAMPHETAMINE SACCHARATE\DEXTROAMPHETAMINE SULFATE
     Dosage: 10 MILLIGRAM
     Route: 048
  10. DIMETHYL FUMARATE [Concomitant]
     Active Substance: DIMETHYL FUMARATE
     Indication: Multiple sclerosis
     Dosage: 240 MILLIGRAM, QD
     Route: 048
  11. ARICEPT [Concomitant]
     Active Substance: DONEPEZIL HYDROCHLORIDE
     Dosage: 5 MILLIGRAM
     Route: 048
  12. Romycin [Concomitant]
     Dosage: UNK (5 MG/GRAM)
     Route: 061
  13. ESTRACE [Concomitant]
     Active Substance: ESTRADIOL
     Dosage: 0.5 MILLIGRAM, QD
     Route: 048
  14. PROVERA [Concomitant]
     Active Substance: MEDROXYPROGESTERONE ACETATE
     Dosage: 5 MILLIGRAM, QD
     Route: 048
  15. TAPAZOLE [Concomitant]
     Active Substance: METHIMAZOLE
     Dosage: 10 MILLIGRAM, QD
     Route: 048
  16. PROVIGIL [Concomitant]
     Active Substance: MODAFINIL
     Dosage: 200 MILLIGRAM
     Route: 048
  17. SYSTANE (HYPROMELLOSE 2910 (4000 MPA.S)) [Concomitant]
     Active Substance: HYPROMELLOSE 2910 (4000 MPA.S)
     Route: 047

REACTIONS (21)
  - Disability [Not Recovered/Not Resolved]
  - Physical disability [Not Recovered/Not Resolved]
  - Deafness permanent [Not Recovered/Not Resolved]
  - Respiratory distress [Unknown]
  - Pain [Not Recovered/Not Resolved]
  - Emotional distress [Not Recovered/Not Resolved]
  - Impaired quality of life [Not Recovered/Not Resolved]
  - Discomfort [Not Recovered/Not Resolved]
  - Deformity [Not Recovered/Not Resolved]
  - Injury [Not Recovered/Not Resolved]
  - Concomitant disease aggravated [Not Recovered/Not Resolved]
  - Anxiety [Not Recovered/Not Resolved]
  - Economic problem [Not Recovered/Not Resolved]
  - Tinnitus [Not Recovered/Not Resolved]
  - Product quality issue [Unknown]
  - Blood thyroid stimulating hormone increased [Unknown]
  - Blood thyroid stimulating hormone decreased [Unknown]
  - Taste disorder [Unknown]
  - Menstruation irregular [Unknown]
  - Alopecia [Unknown]
  - Muscle spasms [Unknown]

NARRATIVE: CASE EVENT DATE: 20220101
